FAERS Safety Report 14571700 (Version 1)
Quarter: 2018Q1

REPORT INFORMATION
  Report Type: Report from Study
  Country: IT (occurrence: IT)
  Receive Date: 20180226
  Receipt Date: 20180226
  Transmission Date: 20180509
  Serious: Yes (Other)
  Sender: FDA-Public Use
  Company Number: IT-INCYTE CORPORATION-2018IN001443

PATIENT

DRUGS (1)
  1. JAKAVI [Suspect]
     Active Substance: RUXOLITINIB
     Indication: MYELOFIBROSIS
     Route: 065

REACTIONS (5)
  - Blast cell count increased [Unknown]
  - Myelofibrosis [Unknown]
  - Acute myeloid leukaemia [Unknown]
  - Anaemia [Unknown]
  - Thrombocytopenia [Unknown]
